FAERS Safety Report 9154280 (Version 1)
Quarter: 2013Q1

REPORT INFORMATION
  Report Type: Spontaneous
  Country: US (occurrence: None)
  Receive Date: 20130306
  Receipt Date: 20130306
  Transmission Date: 20140127
  Serious: No
  Sender: FDA-Public Use
  Company Number: None

PATIENT
  Age: 45 Year
  Sex: Female

DRUGS (5)
  1. QSYMIA [Suspect]
     Dosage: QSYMIA 7.5/46MG DAILY ORALLY
     Route: 048
  2. ONDANSETRON [Concomitant]
  3. ALBUTEROL [Concomitant]
  4. BUPROPION [Concomitant]
  5. IUD [Concomitant]

REACTIONS (4)
  - Dizziness [None]
  - Dyspnoea [None]
  - Unevaluable event [None]
  - Exercise lack of [None]
